FAERS Safety Report 13299820 (Version 9)
Quarter: 2020Q3

REPORT INFORMATION
  Report Type: Report from Study
  Country: US (occurrence: US)
  Receive Date: 20170306
  Receipt Date: 20200806
  Transmission Date: 20201102
  Serious: Yes (Hospitalization, Other)
  Sender: FDA-Public Use
  Company Number: US-ACTELION-A-NJ2017-150572

PATIENT
  Age: 51 Year
  Sex: Female
  Weight: 58.96 kg

DRUGS (11)
  1. OPSUMIT [Suspect]
     Active Substance: MACITENTAN
     Indication: PULMONARY ARTERIAL HYPERTENSION
     Dosage: 10 MG, QD
     Route: 048
     Dates: start: 20160317
  2. ACTEMRA [Concomitant]
     Active Substance: TOCILIZUMAB
  3. UROCIT [Concomitant]
  4. ZOLPIDEM [Concomitant]
     Active Substance: ZOLPIDEM TARTRATE
  5. ADVAIR HFA [Concomitant]
     Active Substance: FLUTICASONE PROPIONATE\SALMETEROL XINAFOATE
  6. OPSUMIT [Suspect]
     Active Substance: MACITENTAN
     Dosage: 10 MG, QD
     Route: 048
     Dates: start: 20160317
  7. FUROSEMIDE. [Concomitant]
     Active Substance: FUROSEMIDE
  8. ADEMPAS [Concomitant]
     Active Substance: RIOCIGUAT
  9. SODIUM BICARBONATE. [Concomitant]
     Active Substance: SODIUM BICARBONATE
  10. CALCIUM [Concomitant]
     Active Substance: CALCIUM
  11. FOLIC ACID. [Concomitant]
     Active Substance: FOLIC ACID

REACTIONS (10)
  - Gastroenteritis viral [Recovered/Resolved]
  - Chemotherapy [Unknown]
  - Hospitalisation [Unknown]
  - Dysphagia [Unknown]
  - Nausea [Unknown]
  - Influenza [Unknown]
  - Product dose omission issue [Recovered/Resolved]
  - Dyspnoea [Unknown]
  - Stent placement [Unknown]
  - Nephrolithiasis [Unknown]

NARRATIVE: CASE EVENT DATE: 201902
